FAERS Safety Report 6673651-1 (Version None)
Quarter: 2010Q2

REPORT INFORMATION
  Report Type: 
  Country: None (occurrence: None)
  Receive Date: 20100408
  Receipt Date: 20100401
  Transmission Date: 20101027
  Serious: Yes (Other)
  Sender: FDA-Public Use
  Company Number: JP-ABBOTT-10P-087-0629769-00

PATIENT
  Age: 64 Year
  Sex: Male

DRUGS (1)
  1. PRERAN [Suspect]
     Indication: HYPERTENSION
     Route: 048
     Dates: end: 20040206

REACTIONS (1)
  - ANGIOEDEMA [None]
